FAERS Safety Report 5806748-6 (Version None)
Quarter: 2008Q3

REPORT INFORMATION
  Report Type: 
  Country: None (occurrence: None)
  Receive Date: 20080709
  Receipt Date: 20080709
  Transmission Date: 20090109
  Serious: Yes (Hospitalization)
  Sender: FDA-Public Use
  Company Number: None

PATIENT
  Sex: Male
  Weight: 59 kg

DRUGS (3)
  1. FLUOROURACIL [Suspect]
     Dosage: 4732 MG
     Dates: end: 20080515
  2. LEUCOVORIN CALCIUM [Suspect]
     Dosage: 676 MG
     Dates: end: 20080513
  3. ELOXATIN [Suspect]
     Dosage: 144 MG
     Dates: end: 20080513

REACTIONS (6)
  - ANOREXIA [None]
  - ASTHENIA [None]
  - CLOSTRIDIAL INFECTION [None]
  - CULTURE STOOL POSITIVE [None]
  - DIARRHOEA [None]
  - PYREXIA [None]
